FAERS Safety Report 16539028 (Version 1)
Quarter: 2019Q3

REPORT INFORMATION
  Report Type: Spontaneous
  Country: US (occurrence: US)
  Receive Date: 20190705
  Receipt Date: 20190705
  Transmission Date: 20191004
  Serious: No
  Sender: FDA-Public Use
  Company Number: None

PATIENT
  Age: 54 Year
  Sex: Female
  Weight: 57.15 kg

DRUGS (7)
  1. RESTORIL [Concomitant]
     Active Substance: TEMAZEPAM
  2. VITAMIN C [Concomitant]
     Active Substance: ASCORBIC ACID
  3. EQUATE EYE ALLERGY RELIEF DROPS [Suspect]
     Active Substance: NAPHAZOLINE HYDROCHLORIDE\PHENIRAMINE MALEATE
     Indication: EYE ALLERGY
     Dates: end: 20190704
  4. BIOTIN [Concomitant]
     Active Substance: BIOTIN
  5. MAGNESIUM CITRATE. [Concomitant]
     Active Substance: MAGNESIUM CITRATE
  6. METOPROLOL. [Concomitant]
     Active Substance: METOPROLOL
  7. MULTIVITAMIN [Concomitant]
     Active Substance: VITAMINS

REACTIONS (7)
  - Eye irritation [None]
  - Headache [None]
  - Eyelids pruritus [None]
  - Ocular hyperaemia [None]
  - Eye pruritus [None]
  - Head discomfort [None]
  - Recalled product [None]
